FAERS Safety Report 22310029 (Version 1)
Quarter: 2023Q2

REPORT INFORMATION
  Report Type: Spontaneous
  Country: US (occurrence: US)
  Receive Date: 20230511
  Receipt Date: 20230511
  Transmission Date: 20230722
  Serious: Yes (Hospitalization)
  Sender: FDA-Public Use
  Company Number: US-MYLANLABS-2023M1048560

PATIENT
  Age: 62 Year
  Sex: Female

DRUGS (1)
  1. CARBOPLATIN [Suspect]
     Active Substance: CARBOPLATIN
     Indication: Lung adenocarcinoma
     Dosage: UNK,3 CYCLES
     Route: 065

REACTIONS (4)
  - Renal tubular disorder [Recovered/Resolved]
  - Hypomagnesaemia [Recovered/Resolved]
  - Hypocalcaemia [Recovered/Resolved]
  - Blood parathyroid hormone abnormal [Unknown]
